FAERS Safety Report 6418492-5 (Version None)
Quarter: 2009Q4

REPORT INFORMATION
  Report Type: 
  Country: None (occurrence: None)
  Receive Date: 20091026
  Receipt Date: 20091013
  Transmission Date: 20100525
  Serious: Yes (Other)
  Sender: FDA-Public Use
  Company Number: ADR37362009

PATIENT
  Age: 61 Year
  Sex: Female

DRUGS (2)
  1. SIMVASTATIN [Suspect]
     Indication: BLOOD CHOLESTEROL INCREASED
     Dosage: 20 MG, ORAL USE
     Route: 048
     Dates: start: 20071004, end: 20071021
  2. BENDROFLUMETHIAZIDE [Concomitant]

REACTIONS (3)
  - FATIGUE [None]
  - MYALGIA [None]
  - RASH MACULAR [None]
